FAERS Safety Report 4276137-7 (Version None)
Quarter: 2004Q1

REPORT INFORMATION
  Report Type: 
  Country: None (occurrence: None)
  Receive Date: 20040121
  Receipt Date: 20031031
  Transmission Date: 20041129
  Serious: No
  Sender: FDA-Public Use
  Company Number: US-GLAXOSMITHKLINE-A0432410A

PATIENT

DRUGS (1)
  1. VALTREX [Suspect]
     Route: 065

REACTIONS (3)
  - HYPERSENSITIVITY [None]
  - LOCAL SWELLING [None]
  - RASH [None]
